FAERS Safety Report 6474540-8 (Version None)
Quarter: 2009Q4

REPORT INFORMATION
  Report Type: 
  Country: None (occurrence: None)
  Receive Date: 20091123
  Receipt Date: 20091117
  Transmission Date: 20100525
  Serious: Yes (Other)
  Sender: FDA-Public Use
  Company Number: THYM-1001303

PATIENT
  Age: 15 Year

DRUGS (3)
  1. THYMOGLOBULIN [Suspect]
     Indication: TRANSPLANT
  2. ANTIHISTAMINES [Concomitant]
  3. CORTICOSTEROIDS [Concomitant]

REACTIONS (2)
  - CAPILLARY LEAK SYNDROME [None]
  - RENAL FAILURE [None]
